FAERS Safety Report 8766570 (Version 2)
Quarter: 2012Q4

REPORT INFORMATION
  Report Type: 
  Country: US (occurrence: US)
  Receive Date: 20120904
  Receipt Date: 20120904
  Transmission Date: 20130627
  Serious: Yes (Death)
  Sender: FDA-Public Use
  Company Number: US-MYLANLABS-2009S1008825

PATIENT
  Age: 60 Year
  Sex: Female
  Weight: 66.23 kg

DRUGS (19)
  1. FENTANYL TRANSDERMAL SYSTEM [Suspect]
     Indication: PAIN
     Dosage: q48hr
     Route: 062
     Dates: start: 200805, end: 20090124
  2. FENTANYL TRANSDERMAL SYSTEM [Suspect]
     Indication: PAIN
     Dosage: q48hr
     Route: 062
     Dates: start: 200805, end: 20090124
  3. VOLTAREN [Suspect]
     Route: 061
     Dates: end: 20090124
  4. HYDROMORPHONE [Concomitant]
     Indication: BACK PAIN
     Dosage: 2mg to 4mg daily - some days 4mg - exceeded prescribed amount.
  5. PAROXETINE [Concomitant]
     Indication: DEPRESSION
  6. PREDNISONE [Concomitant]
     Indication: ANTIINFLAMMATORY THERAPY
  7. VERPAMIL [Concomitant]
     Indication: BLOOD PRESSURE INCREASED
  8. GABAPENTIN [Concomitant]
  9. TIZANIDINE [Concomitant]
     Indication: MUSCLE RELAXANT THERAPY
  10. LORAZEPAM [Concomitant]
     Indication: INSOMNIA
  11. PANTOPRAZOLE [Concomitant]
  12. METOPROLOL SUCCINATE [Concomitant]
  13. ORPHENADRINE [Concomitant]
  14. FLURAZEPAM [Concomitant]
  15. TRAMADOL [Concomitant]
  16. KLOR-CON [Concomitant]
  17. ONDANSETRON [Concomitant]
  18. CYCLOBENZAPRINE [Concomitant]
  19. ZOLPIDEM [Concomitant]

REACTIONS (7)
  - Drug effect increased [Fatal]
  - Toxicity to various agents [Fatal]
  - Somnolence [Unknown]
  - Hyperhidrosis [Recovered/Resolved]
  - Decreased appetite [Unknown]
  - Speech disorder [Unknown]
  - Incoherent [Unknown]
